FAERS Safety Report 8373383 (Version 2)
Quarter: 2013Q2

REPORT INFORMATION
  Report Type: Spontaneous
  Country: US (occurrence: None)
  Receive Date: 20111221
  Receipt Date: 20121227
  Transmission Date: 20140414
  Serious: Yes (Other)
  Sender: FDA-Public Use
  Company Number: PHHY2011US08948

PATIENT
  Age: 20 Year
  Sex: Female
  Weight: 147 kg

DRUGS (4)
  1. EXJADE [Suspect]
     Indication: IRON OVERLOAD
     Dosage: 1250 MG, DAILY, ORAL
     Route: 048
     Dates: start: 201012
  2. EXJADE [Suspect]
     Indication: CHELATION THERAPY
     Dosage: 1250 MG, DAILY, ORAL
     Route: 048
     Dates: start: 201012
  3. HYDROXYUREA [Concomitant]
  4. FOLIC ACID [Concomitant]

REACTIONS (1)
  - MATERNAL EXPOSURE DURING PREGNANCY [None]
